FAERS Safety Report 6216810-4 (Version None)
Quarter: 2009Q2

REPORT INFORMATION
  Report Type: 
  Country: None (occurrence: None)
  Receive Date: 20090605
  Receipt Date: 20090601
  Transmission Date: 20091009
  Serious: Yes (Hospitalization)
  Sender: FDA-Public Use
  Company Number: GB-ROXANE LABORATORIES, INC.-2009-RO-00544RO

PATIENT
  Age: 56 Year
  Sex: Male

DRUGS (3)
  1. MYCOPHENOLATE MOFETIL [Suspect]
     Indication: IMMUNOSUPPRESSION
     Dosage: 2G
     Dates: end: 20041129
  2. CYCLOSPORINE [Suspect]
     Indication: IMMUNOSUPPRESSION
     Dosage: 150MG
  3. CIPROFLOXACIN [Suspect]
     Indication: CAMPYLOBACTER INTESTINAL INFECTION
     Dates: start: 20041023

REACTIONS (2)
  - CAMPYLOBACTER INTESTINAL INFECTION [None]
  - STEATORRHOEA [None]
